FAERS Safety Report 9275606 (Version 1)
Quarter: 2013Q2

REPORT INFORMATION
  Report Type: Spontaneous
  Country: ES (occurrence: GB)
  Receive Date: 20130507
  Receipt Date: 20130507
  Transmission Date: 20140414
  Serious: Yes (Other)
  Sender: FDA-Public Use
  Company Number: GB-FRI-1000044973

PATIENT
  Age: 56 Year
  Sex: Male
  Weight: 111 kg

DRUGS (4)
  1. ACLIDINIUM BROMIDE [Suspect]
     Dosage: 750 MCG
     Route: 055
     Dates: start: 20130205
  2. BUDESONIDE [Concomitant]
     Dates: start: 20121205, end: 20130102
  3. LANSOPRAZOLE [Concomitant]
     Dates: start: 20121009
  4. NAPROXEN [Concomitant]
     Dates: start: 20121205, end: 20121219

REACTIONS (1)
  - Bronchospasm [Recovered/Resolved]
